FAERS Safety Report 23531213 (Version 1)
Quarter: 2024Q1

REPORT INFORMATION
  Report Type: Spontaneous
  Country: US (occurrence: None)
  Receive Date: 20240215
  Receipt Date: 20240215
  Transmission Date: 20240410
  Serious: Yes (Hospitalization)
  Sender: FDA-Public Use
  Company Number: None

PATIENT
  Age: 62 Year
  Sex: Male

DRUGS (1)
  1. AMBRISENTAN [Suspect]
     Active Substance: AMBRISENTAN
     Indication: Pulmonary hypertension
     Dosage: 5MG QD ORAL
     Route: 048
     Dates: start: 20231130, end: 20231218

REACTIONS (4)
  - Hypervolaemia [None]
  - Therapy interrupted [None]
  - Acute respiratory failure [None]
  - Respiratory failure [None]

NARRATIVE: CASE EVENT DATE: 20240215
